FAERS Safety Report 7764470-3 (Version None)
Quarter: 2011Q3

REPORT INFORMATION
  Report Type: 
  Country: None (occurrence: None)
  Receive Date: 20110919
  Receipt Date: 20110902
  Transmission Date: 20111222
  Serious: Yes (Hospitalization, Other)
  Sender: FDA-Public Use
  Company Number: AUR-APL-2011-02911

PATIENT
  Age: 43 Year
  Sex: Male

DRUGS (12)
  1. PROPRANOLOL [Suspect]
     Indication: HYPERTENSION
     Dosage: 10 MG (10 MG, 1 IN 1 D),
  2. RAMIPRIL [Suspect]
     Indication: HYPERTENSION
  3. DARUNAVIR HYDRATE [Suspect]
     Indication: HIV INFECTION
     Dosage: 800 MG (800 MG, 1 IN 1 D),
     Dates: start: 20070101
  4. RALTEGRAVIR [Concomitant]
  5. TENOFOVIR DISOPROXIL FUMARATE [Concomitant]
  6. MARAVIROC [Concomitant]
  7. PERINDOPRIL ERBUMINE [Suspect]
     Indication: HYPERTENSION
     Dates: start: 20080101, end: 20080101
  8. DILTIAZEM [Suspect]
     Indication: HYPERTENSION
     Dosage: 60 MG (60 MG, 1 IN 1 D),
  9. BENDROFLUAZIDE (BENDROFLUMETHIAZIDE) [Suspect]
  10. EMTRICITABINE [Concomitant]
  11. RITONAVIR [Suspect]
     Indication: HIV INFECTION
     Dosage: 100 MG (100 MG, 1 IN 1 D),
     Dates: start: 20070101
  12. ANTIVIRALS (ANTIVIRALS NOS) [Concomitant]

REACTIONS (9)
  - MIGRAINE [None]
  - BLOOD PRESSURE INADEQUATELY CONTROLLED [None]
  - HYPOTENSION [None]
  - SECONDARY HYPERTENSION [None]
  - DRUG INTERACTION [None]
  - TOXICITY TO VARIOUS AGENTS [None]
  - CONDITION AGGRAVATED [None]
  - LIPIDS INCREASED [None]
  - RENAL IMPAIRMENT [None]
